FAERS Safety Report 9867689 (Version 2)
Quarter: 2014Q1

REPORT INFORMATION
  Report Type: Report from Study
  Country: CA (occurrence: CA)
  Receive Date: 20140204
  Receipt Date: 20140204
  Transmission Date: 20141002
  Serious: Yes (Hospitalization, Other)
  Sender: FDA-Public Use
  Company Number: CA-SANOFI-AVENTIS-2011SA079645

PATIENT
  Age: 60 Year
  Sex: Female
  Weight: 138.4 kg

DRUGS (14)
  1. TERIFLUNOMIDE [Suspect]
     Indication: MULTIPLE SCLEROSIS RELAPSE
     Route: 048
     Dates: start: 20020715
  2. IRBESARTAN [Concomitant]
     Indication: HYPERTENSION
     Route: 048
     Dates: start: 20050608
  3. ROBAXACET [Concomitant]
     Indication: BACK PAIN
     Route: 048
     Dates: start: 20051213
  4. ASPIRIN [Concomitant]
     Indication: PAIN IN EXTREMITY
     Route: 048
     Dates: start: 20071101
  5. PERCOCET [Concomitant]
     Indication: MULTIPLE SCLEROSIS
     Dosage: DOSE:1 UNIT(S)
     Route: 048
     Dates: start: 20080107
  6. AMLODIPINE BESILATE [Concomitant]
     Indication: HYPERTENSION
     Dates: start: 20090107
  7. ARTHROTEC [Concomitant]
     Indication: HYPERTENSION
     Dates: start: 201010
  8. BACLOFEN [Concomitant]
     Indication: MULTIPLE SCLEROSIS
     Dates: start: 201010
  9. ATIVAN [Concomitant]
     Indication: ANXIETY
     Route: 048
     Dates: start: 20110110
  10. TYLENOL [Concomitant]
     Indication: ARTHRALGIA
     Route: 048
     Dates: start: 201102
  11. ESOMEPRAZOLE [Concomitant]
     Indication: GASTROOESOPHAGEAL REFLUX DISEASE
     Route: 048
     Dates: start: 201105
  12. MAVIK [Concomitant]
     Indication: HYPERTENSION
     Dates: start: 201012
  13. CYCLOBENZAPRINE [Concomitant]
     Indication: ARTHRALGIA
     Route: 048
     Dates: start: 20110119
  14. ROSUVASTATIN [Concomitant]
     Indication: BLOOD CHOLESTEROL
     Dates: start: 201105

REACTIONS (4)
  - Atrial fibrillation [Recovered/Resolved]
  - Atrial fibrillation [Recovered/Resolved]
  - Atrial fibrillation [Recovered/Resolved]
  - Myocardial infarction [Recovered/Resolved with Sequelae]
